FAERS Safety Report 11495195 (Version 1)
Quarter: 2015Q3

REPORT INFORMATION
  Report Type: Spontaneous
  Country: DE (occurrence: DE)
  Receive Date: 20150911
  Receipt Date: 20150911
  Transmission Date: 20151125
  Serious: Yes (Other)
  Sender: FDA-Public Use
  Company Number: DE-BIOGENIDEC-2015BI122902

PATIENT
  Age: 32 Year
  Sex: Female
  Weight: 59 kg

DRUGS (1)
  1. AVONEX [Suspect]
     Active Substance: INTERFERON BETA-1A
     Indication: MULTIPLE SCLEROSIS
     Route: 030
     Dates: start: 20130401

REACTIONS (3)
  - Postmature baby [Recovered/Resolved]
  - Maternal exposure during pregnancy [Recovered/Resolved]
  - Cephalo-pelvic disproportion [Recovered/Resolved]

NARRATIVE: CASE EVENT DATE: 20141026
